FAERS Safety Report 7293165-8 (Version None)
Quarter: 2011Q1

REPORT INFORMATION
  Report Type: 
  Country: None (occurrence: None)
  Receive Date: 20110215
  Receipt Date: 20110202
  Transmission Date: 20110831
  Serious: Yes (Hospitalization)
  Sender: FDA-Public Use
  Company Number: US-ACTELION-A-NJ2008-22113

PATIENT

DRUGS (2)
  1. TRACLEER [Suspect]
     Indication: PULMONARY ARTERIAL HYPERTENSION
     Dosage: 125 MG, BID
     Route: 048
     Dates: start: 20080613, end: 20110101
  2. ALBUTEROL [Concomitant]

REACTIONS (13)
  - RENAL FAILURE [None]
  - DIALYSIS [None]
  - INFECTION [None]
  - PNEUMONIA [None]
  - MIGRAINE [None]
  - DYSPNOEA [None]
  - VOMITING [None]
  - FLUID RETENTION [None]
  - DERMATITIS [None]
  - PYREXIA [None]
  - CHILLS [None]
  - UPPER RESPIRATORY TRACT INFECTION [None]
  - OROPHARYNGEAL PAIN [None]
